FAERS Safety Report 5750381-1 (Version None)
Quarter: 2008Q2

REPORT INFORMATION
  Report Type: 
  Country: None (occurrence: None)
  Receive Date: 20080528
  Receipt Date: 20080523
  Transmission Date: 20081010
  Serious: Yes (Hospitalization)
  Sender: FDA-Public Use
  Company Number: FR-WYE-G01577708

PATIENT
  Sex: Female

DRUGS (2)
  1. ADVIL [Suspect]
     Indication: PARONYCHIA
     Dosage: UNKNOWN
     Route: 048
     Dates: start: 20080424, end: 20080427
  2. ADVIL [Suspect]
     Indication: PYREXIA

REACTIONS (2)
  - ACUTE GENERALISED EXANTHEMATOUS PUSTULOSIS [None]
  - CYTOLYTIC HEPATITIS [None]
